FAERS Safety Report 4679203-7 (Version None)
Quarter: 2005Q2

REPORT INFORMATION
  Report Type: 
  Country: None (occurrence: None)
  Receive Date: 20050119
  Receipt Date: 20050119
  Transmission Date: 20051028
  Serious: Yes (Other)
  Sender: FDA-Public Use
  Company Number: None

PATIENT
  Sex: Male

DRUGS (1)
  1. WARFARIN [Suspect]
     Dosage: 5 G 3PO QD
     Route: 048
     Dates: start: 20020211, end: 20020312

REACTIONS (1)
  - RASH PRURITIC [None]
